FAERS Safety Report 7531254-0 (Version None)
Quarter: 2011Q2

REPORT INFORMATION
  Report Type: 
  Country: None (occurrence: None)
  Receive Date: 20110608
  Receipt Date: 20110525
  Transmission Date: 20111010
  Serious: Yes (Other)
  Sender: FDA-Public Use
  Company Number: CA-JNJFOC-20100709099

PATIENT
  Sex: Female

DRUGS (4)
  1. REMICADE [Suspect]
     Indication: CROHN'S DISEASE
     Dosage: REPORTED AS 2007 TO 2011 AND STILL RECEIVING INFLIXIMAB
     Route: 042
     Dates: start: 20070101
  2. REMICADE [Suspect]
     Dosage: REPORTED AS 2007 TO 2011 AND STILL RECEIVING INFLIXIMAB
     Route: 042
     Dates: start: 20110101
  3. REMICADE [Suspect]
     Route: 042
     Dates: start: 20060101
  4. REMICADE [Suspect]
     Route: 042

REACTIONS (1)
  - LUNG ADENOCARCINOMA METASTATIC [None]
